FAERS Safety Report 6683228-X (Version None)
Quarter: 2010Q2

REPORT INFORMATION
  Report Type: 
  Country: None (occurrence: None)
  Receive Date: 20100415
  Receipt Date: 20100405
  Transmission Date: 20101027
  Serious: Yes (Other)
  Sender: FDA-Public Use
  Company Number: US-JNJFOC-20100108919

PATIENT
  Sex: Female
  Weight: 51.71 kg

DRUGS (2)
  1. MOTRIN IB [Suspect]
     Indication: PAIN
     Route: 048
  2. MOTRIN IB [Suspect]
     Indication: PYREXIA
     Route: 048

REACTIONS (5)
  - BRONCHITIS [None]
  - INFECTIOUS MONONUCLEOSIS [None]
  - PNEUMONIA [None]
  - PRODUCT QUALITY ISSUE [None]
  - SINUSITIS [None]
